FAERS Safety Report 10208889 (Version 1)
Quarter: 2014Q2

REPORT INFORMATION
  Report Type: Report from Study
  Country: US (occurrence: US)
  Receive Date: 20140530
  Receipt Date: 20140530
  Transmission Date: 20141212
  Serious: Yes (Hospitalization, Other)
  Sender: FDA-Public Use
  Company Number: US-ASTRAZENECA-2014SE35907

PATIENT
  Age: 60 Year
  Sex: Female
  Weight: 79.4 kg

DRUGS (3)
  1. PRILOSEC [Suspect]
     Indication: GASTROOESOPHAGEAL REFLUX DISEASE
     Dosage: DAILY
     Route: 048
     Dates: start: 201307
  2. NEXIUM [Suspect]
     Indication: GASTROOESOPHAGEAL REFLUX DISEASE
     Route: 048
     Dates: start: 201308
  3. Z-PACK [Concomitant]
     Indication: PNEUMONIA
     Route: 048
     Dates: start: 20140402, end: 20140404

REACTIONS (3)
  - Deafness [Unknown]
  - Pneumonia [Recovered/Resolved]
  - Drug intolerance [Unknown]
